FAERS Safety Report 5968826-0 (Version None)
Quarter: 2008Q4

REPORT INFORMATION
  Report Type: 
  Country: None (occurrence: None)
  Receive Date: 20081126
  Receipt Date: 20081112
  Transmission Date: 20090506
  Serious: Yes (Hospitalization, Other)
  Sender: FDA-Public Use
  Company Number: ES-JNJFOC-20080701457

PATIENT
  Age: 39 Year
  Sex: Female
  Weight: 64 kg

DRUGS (5)
  1. REMICADE [Suspect]
     Indication: COLITIS ULCERATIVE
     Dosage: TOTAL OF 15 INFUSIONS ADMINISTERED
     Route: 042
  2. 5-AMINOSALICYLIC ACID [Concomitant]
  3. AZATHIOPRINE [Concomitant]
     Indication: COLITIS ULCERATIVE
  4. MERCAPTOPURINE [Concomitant]
     Indication: COLITIS ULCERATIVE
  5. MESALAMINE [Concomitant]
     Dosage: DOSE REPORTED AS ^1000^

REACTIONS (9)
  - AMENORRHOEA [None]
  - ASTHENIA [None]
  - CHOLESTASIS [None]
  - DIFFUSE LARGE B-CELL LYMPHOMA [None]
  - HAEMOPHILUS INFECTION [None]
  - NORMOCHROMIC NORMOCYTIC ANAEMIA [None]
  - PNEUMONIA STREPTOCOCCAL [None]
  - STREPTOCOCCAL INFECTION [None]
  - UPPER RESPIRATORY TRACT INFECTION [None]
